FAERS Safety Report 24211597 (Version 6)
Quarter: 2025Q3

REPORT INFORMATION
  Report Type: Spontaneous
  Country: US (occurrence: US)
  Receive Date: 20240814
  Receipt Date: 20250918
  Transmission Date: 20251021
  Serious: Yes (Hospitalization, Other)
  Sender: SUNOVION
  Company Number: US-SUMITOMO PHARMA SWITZERLAND GMBH-2024SPA000910

PATIENT
  Age: 74 Year
  Sex: Male

DRUGS (4)
  1. ORGOVYX [Suspect]
     Active Substance: RELUGOLIX
     Indication: Prostate cancer
     Dosage: 120 MG, QD
     Route: 048
  2. IRBESARTAN [Concomitant]
     Active Substance: IRBESARTAN
     Indication: Blood pressure abnormal
     Dosage: UNK UNK, BID
  3. NIFEDIPINE [Concomitant]
     Active Substance: NIFEDIPINE
     Indication: Blood pressure abnormal
     Dosage: UNK UNK, QD
  4. CLOZAPINE [Concomitant]
     Active Substance: CLOZAPINE
     Indication: Prostate cancer
     Dosage: UNK, QD

REACTIONS (9)
  - Aortic valve replacement [Unknown]
  - Shoulder operation [Unknown]
  - Arrhythmia [Unknown]
  - Pain [Unknown]
  - Abdominal distension [Unknown]
  - Arthralgia [Unknown]
  - Neck pain [Unknown]
  - Hot flush [Unknown]
  - Weight increased [Unknown]

NARRATIVE: CASE EVENT DATE: 20240310
